FAERS Safety Report 18911082 (Version 2)
Quarter: 2021Q1

REPORT INFORMATION
  Report Type: Spontaneous
  Country: US (occurrence: US)
  Receive Date: 20210218
  Receipt Date: 20210312
  Transmission Date: 20210420
  Serious: No
  Sender: FDA-Public Use
  Company Number: US-PFIZER INC-2021138547

PATIENT
  Age: 65 Year
  Sex: Female

DRUGS (1)
  1. INLYTA [Suspect]
     Active Substance: AXITINIB
     Indication: RENAL CELL CARCINOMA
     Dosage: 5 MG, 2X/DAY
     Route: 048
     Dates: start: 202008

REACTIONS (7)
  - Salivary gland enlargement [Recovering/Resolving]
  - Frustration tolerance decreased [Unknown]
  - Product dose omission issue [Unknown]
  - Hypertension [Unknown]
  - Limb mass [Recovering/Resolving]
  - Pruritus [Recovering/Resolving]
  - Emotional disorder [Unknown]
